FAERS Safety Report 5829844-6 (Version None)
Quarter: 2008Q3

REPORT INFORMATION
  Report Type: 
  Country: None (occurrence: None)
  Receive Date: 20080801
  Receipt Date: 20080723
  Transmission Date: 20090109
  Serious: Yes (Hospitalization)
  Sender: FDA-Public Use
  Company Number: US-AMGEN-QUU296801

PATIENT
  Sex: Male

DRUGS (2)
  1. ENBREL [Suspect]
     Indication: PSORIASIS
     Route: 058
     Dates: start: 20030504
  2. ENBREL [Suspect]
     Indication: PSORIATIC ARTHROPATHY

REACTIONS (9)
  - ASTHENIA [None]
  - CIRRHOSIS ALCOHOLIC [None]
  - DEMENTIA [None]
  - HAEMORRHAGIC DIATHESIS [None]
  - HEART RATE DECREASED [None]
  - PSORIASIS [None]
  - PSORIATIC ARTHROPATHY [None]
  - THROMBOSIS [None]
  - VITAMIN B12 DEFICIENCY [None]
